FAERS Safety Report 20069860 (Version 1)
Quarter: 2021Q4

REPORT INFORMATION
  Report Type: Spontaneous
  Country: US (occurrence: None)
  Receive Date: 20211114
  Receipt Date: 20211114
  Transmission Date: 20220304
  Serious: Yes (Hospitalization)
  Sender: FDA-Public Use
  Company Number: None

PATIENT
  Age: 56 Year
  Sex: Male
  Weight: 77.1 kg

DRUGS (20)
  1. NAFCILLIN [Suspect]
     Active Substance: NAFCILLIN SODIUM
     Indication: Post procedural infection
     Dosage: OTHER FREQUENCY : EVERY FOUR HOURS;?
     Route: 030
     Dates: start: 20210426, end: 20210514
  2. DIPHENHYDRAMINE [Concomitant]
     Active Substance: DIPHENHYDRAMINE
  3. Amantadine 100mg capsule [Concomitant]
  4. Baclofen 20mg capsule [Concomitant]
  5. Aspirin 325mg tablet [Concomitant]
  6. Cyanocobalamin 1000mcg [Concomitant]
  7. Hemocyte-F (Ferrous fumarate-folic acid) [Concomitant]
  8. GABAPENTIN [Concomitant]
     Active Substance: GABAPENTIN
  9. Levothyroxine 75mcg tablet [Concomitant]
  10. LORATADINE [Concomitant]
     Active Substance: LORATADINE
  11. Modafanil 200mg tablet [Concomitant]
  12. MONTELUKAST [Concomitant]
     Active Substance: MONTELUKAST SODIUM
  13. Multivitamin tablet [Concomitant]
  14. Vitamin D2 50000 Unit capsule [Concomitant]
  15. VITAMIN B COMPLEX [Concomitant]
     Active Substance: CYANOCOBALAMIN\DEXPANTHENOL\NIACINAMIDE\PYRIDOXINE HYDROCHLORIDE\RIBOFLAVIN 5^-PHOSPHATE SODIUM\THIA
  16. Butalbital-acetaminophen-caffiene (Esgic) 50-325-40mg tablet [Concomitant]
  17. DIAZEPAM [Concomitant]
     Active Substance: DIAZEPAM
  18. ACETAMINOPHEN\HYDROCODONE BITARTRATE [Concomitant]
     Active Substance: ACETAMINOPHEN\HYDROCODONE BITARTRATE
  19. Ondansetron 4mg tablet [Concomitant]
  20. Tadalafil 10mg tablet [Concomitant]

REACTIONS (2)
  - Drug reaction with eosinophilia and systemic symptoms [None]
  - Drug hypersensitivity [None]

NARRATIVE: CASE EVENT DATE: 20210514
